FAERS Safety Report 24601198 (Version 1)
Quarter: 2024Q4

REPORT INFORMATION
  Report Type: Spontaneous
  Country: IT (occurrence: IT)
  Receive Date: 20241111
  Receipt Date: 20241111
  Transmission Date: 20250115
  Serious: Yes (Hospitalization)
  Sender: Haleon PLC
  Company Number: None

PATIENT
  Age: 25 Year
  Sex: Female

DRUGS (2)
  1. IBUPROFEN [Suspect]
     Active Substance: IBUPROFEN
     Indication: Pharyngotonsillitis
     Dosage: 600 MG OGNI 12 ORE
     Dates: start: 20240817, end: 20240818
  2. AMOXICILLIN\CLAVULANATE POTASSIUM [Suspect]
     Active Substance: AMOXICILLIN\CLAVULANATE POTASSIUM
     Indication: Pharyngotonsillitis
     Dosage: 875 +125 OGNI 8 ORE
     Route: 048
     Dates: start: 20240817, end: 20240817

REACTIONS (4)
  - Skin toxicity [Recovered/Resolved]
  - Pyrexia [Recovered/Resolved]
  - White blood cell count increased [Recovering/Resolving]
  - C-reactive protein abnormal [Recovered/Resolved]

NARRATIVE: CASE EVENT DATE: 20240817
